FAERS Safety Report 21735115 (Version 1)
Quarter: 2022Q4

REPORT INFORMATION
  Report Type: Spontaneous
  Country: PT (occurrence: PT)
  Receive Date: 20221215
  Receipt Date: 20221215
  Transmission Date: 20230112
  Serious: Yes (Other)
  Sender: FDA-Public Use
  Company Number: PT-AMGEN-PRTSP2022215259

PATIENT

DRUGS (3)
  1. CINACALCET HYDROCHLORIDE [Suspect]
     Active Substance: CINACALCET HYDROCHLORIDE
     Indication: Hyperparathyroidism secondary
     Dosage: UNK
     Route: 065
  2. ETELCALCETIDE [Suspect]
     Active Substance: ETELCALCETIDE
     Indication: Hyperparathyroidism secondary
     Dosage: 5 MILLIGRAM/HD
     Route: 040
  3. VITAMIN D [Concomitant]
     Active Substance: VITAMIN D NOS
     Indication: Hyperparathyroidism secondary
     Dosage: UNK

REACTIONS (3)
  - Renal transplant [Unknown]
  - Drug ineffective [Unknown]
  - Hypocalcaemia [Unknown]
